FAERS Safety Report 19074465 (Version 1)
Quarter: 2021Q1

REPORT INFORMATION
  Report Type: Report from Study
  Country: CO (occurrence: CO)
  Receive Date: 20210330
  Receipt Date: 20210330
  Transmission Date: 20210420
  Serious: Yes (Other)
  Sender: FDA-Public Use
  Company Number: NVSC2021CO061584

PATIENT
  Sex: Female
  Weight: 57 kg

DRUGS (1)
  1. LOSARTAN. [Suspect]
     Active Substance: LOSARTAN
     Indication: HYPERTENSION
     Dosage: 50 MG, QD (STARTED 10 YEARS AGO)
     Route: 048

REACTIONS (3)
  - Metastases to lung [Unknown]
  - Breast cancer metastatic [Unknown]
  - Diabetes mellitus [Unknown]
